FAERS Safety Report 13473182 (Version 1)
Quarter: 2017Q2

REPORT INFORMATION
  Report Type: Spontaneous
  Country: US (occurrence: US)
  Receive Date: 20170424
  Receipt Date: 20170424
  Transmission Date: 20170830
  Serious: No
  Sender: FDA-Public Use
  Company Number: US-ASTELLAS-2016US017390

PATIENT
  Age: 62 Year
  Sex: Female

DRUGS (1)
  1. LEXISCAN [Suspect]
     Active Substance: REGADENOSON
     Indication: PRODUCT USED FOR UNKNOWN INDICATION
     Dosage: 0.4 MG, OTHER (TWICE)
     Route: 042
     Dates: start: 20160503, end: 20160503

REACTIONS (2)
  - Vein rupture [Unknown]
  - Underdose [Unknown]

NARRATIVE: CASE EVENT DATE: 20160503
